FAERS Safety Report 9893773 (Version 1)
Quarter: 2014Q1

REPORT INFORMATION
  Report Type: Report from Study
  Country: JP (occurrence: JP)
  Receive Date: 20140213
  Receipt Date: 20140213
  Transmission Date: 20141002
  Serious: Yes (Hospitalization)
  Sender: FDA-Public Use
  Company Number: JP-TAKEDA-TCI2013A06024

PATIENT
  Age: 91 Year
  Sex: Female
  Weight: 47 kg

DRUGS (3)
  1. ALOGLIPTIN [Suspect]
     Indication: TYPE 2 DIABETES MELLITUS
     Dosage: 25 MG, QD
     Route: 048
     Dates: start: 20120618, end: 20120630
  2. VOGLIBOSE [Concomitant]
     Indication: TYPE 2 DIABETES MELLITUS
     Dosage: 0.6 MG,1 DAYS
     Route: 048
     Dates: start: 20111025, end: 20120630
  3. FAMOSTAGINE D [Concomitant]
     Dosage: 40 MG, 1 DAYS
     Route: 048
     Dates: end: 20120630

REACTIONS (1)
  - Urinary tract infection [Unknown]
